FAERS Safety Report 7355758-9 (Version None)
Quarter: 2011Q1

REPORT INFORMATION
  Report Type: 
  Country: None (occurrence: None)
  Receive Date: 20110316
  Receipt Date: 20110307
  Transmission Date: 20110831
  Serious: Yes (Hospitalization, Other)
  Sender: FDA-Public Use
  Company Number: US-TEVA-270188USA

PATIENT
  Age: 70 Year
  Sex: Female

DRUGS (4)
  1. FOLINIC ACID [Suspect]
  2. OXALIPLATIN [Suspect]
  3. FLUOROURACIL [Suspect]
     Dosage: 2.4 G/M2
  4. BEVACIZUMAB [Suspect]

REACTIONS (1)
  - HYPERAMMONAEMIC ENCEPHALOPATHY [None]
